FAERS Safety Report 24600517 (Version 3)
Quarter: 2024Q4

REPORT INFORMATION
  Report Type: Spontaneous
  Country: JP (occurrence: JP)
  Receive Date: 20241110
  Receipt Date: 20241130
  Transmission Date: 20250114
  Serious: Yes (Death, Hospitalization, Other)
  Sender: ALEXION PHARMACEUTICALS
  Company Number: JP-ASTRAZENECA-240113605_064320_P_1

PATIENT
  Age: 87 Year

DRUGS (3)
  1. ANDEXXA [Suspect]
     Active Substance: ANDEXANET ALFA
     Indication: Brain contusion
     Dosage: 800 MG IV AT A RATE OF 30 MG/MIN, FOLLOWED BY 960 MG IV AT A RATE OF 8 MG/MIN FOR 2 H
  2. EDOXABAN TOSYLATE [Suspect]
     Active Substance: EDOXABAN TOSYLATE
  3. EDOXABAN TOSYLATE [Suspect]
     Active Substance: EDOXABAN TOSYLATE

REACTIONS (2)
  - Cerebral infarction [Fatal]
  - Brain herniation [Fatal]
